FAERS Safety Report 16291004 (Version 1)
Quarter: 2019Q2

REPORT INFORMATION
  Report Type: Spontaneous
  Country: CN (occurrence: CN)
  Receive Date: 20190509
  Receipt Date: 20190509
  Transmission Date: 20190711
  Serious: Yes (Other)
  Sender: FDA-Public Use
  Company Number: CN-ROCHE-2309133

PATIENT
  Age: 53 Year
  Sex: Female

DRUGS (16)
  1. CAPECITABINE. [Suspect]
     Active Substance: CAPECITABINE
     Route: 048
     Dates: start: 2016, end: 20161210
  2. CAPECITABINE. [Suspect]
     Active Substance: CAPECITABINE
     Route: 048
     Dates: start: 20180416, end: 2018
  3. OXALIPLATIN. [Suspect]
     Active Substance: OXALIPLATIN
     Indication: METASTASES TO LIVER
     Route: 041
     Dates: start: 2016, end: 20161115
  4. OXALIPLATIN. [Suspect]
     Active Substance: OXALIPLATIN
     Indication: RECTAL CANCER
     Route: 041
     Dates: start: 2016, end: 2016
  5. OXALIPLATIN. [Suspect]
     Active Substance: OXALIPLATIN
     Route: 041
     Dates: end: 20170106
  6. CAPECITABINE. [Suspect]
     Active Substance: CAPECITABINE
     Indication: RECTAL CANCER
     Route: 048
     Dates: start: 2016, end: 2016
  7. CAPECITABINE. [Suspect]
     Active Substance: CAPECITABINE
     Route: 048
     Dates: start: 2017, end: 20170208
  8. OXALIPLATIN. [Suspect]
     Active Substance: OXALIPLATIN
     Route: 041
     Dates: start: 2016, end: 20161115
  9. OXALIPLATIN. [Suspect]
     Active Substance: OXALIPLATIN
     Route: 041
     Dates: start: 2017, end: 20170208
  10. OXALIPLATIN. [Suspect]
     Active Substance: OXALIPLATIN
     Route: 041
     Dates: start: 20180511
  11. OXALIPLATIN. [Suspect]
     Active Substance: OXALIPLATIN
     Route: 041
     Dates: start: 20180416, end: 2018
  12. BEVACIZUMAB. [Suspect]
     Active Substance: BEVACIZUMAB
     Indication: RECTAL CANCER
     Dosage: 21 DAYS AS A CYCLE
     Route: 041
     Dates: start: 2016
  13. CAPECITABINE. [Suspect]
     Active Substance: CAPECITABINE
     Route: 048
     Dates: start: 20180511
  14. CAPECITABINE. [Suspect]
     Active Substance: CAPECITABINE
     Indication: METASTASES TO LIVER
     Route: 048
     Dates: start: 2016, end: 20161115
  15. CAPECITABINE. [Suspect]
     Active Substance: CAPECITABINE
     Route: 048
     Dates: end: 20170106
  16. BEVACIZUMAB. [Suspect]
     Active Substance: BEVACIZUMAB
     Indication: METASTASES TO LIVER

REACTIONS (10)
  - Gallbladder cholesterolosis [Unknown]
  - Blood disorder [Unknown]
  - Stoma site inflammation [Unknown]
  - Rectal polyp [Unknown]
  - Cholecystitis chronic [Unknown]
  - Gastrointestinal disorder [Unknown]
  - Diverticulum intestinal [Unknown]
  - Proctitis [Unknown]
  - Neuropathy peripheral [Unknown]
  - Anastomotic complication [Unknown]
